FAERS Safety Report 6097718-4 (Version None)
Quarter: 2009Q1

REPORT INFORMATION
  Report Type: 
  Country: None (occurrence: None)
  Receive Date: 20090227
  Receipt Date: 20090217
  Transmission Date: 20090719
  Serious: Yes (Other)
  Sender: FDA-Public Use
  Company Number: US-PFIZER INC-2009174045

PATIENT
  Sex: Female
  Weight: 79.365 kg

DRUGS (1)
  1. CHANTIX [Suspect]
     Indication: SMOKING CESSATION THERAPY
     Dates: start: 20090202

REACTIONS (5)
  - CHEST DISCOMFORT [None]
  - HYPERSENSITIVITY [None]
  - LYMPHADENOPATHY [None]
  - ODYNOPHAGIA [None]
  - THROAT TIGHTNESS [None]
